FAERS Safety Report 20050394 (Version 1)
Quarter: 2021Q4

REPORT INFORMATION
  Report Type: Spontaneous
  Country: CN (occurrence: CN)
  Receive Date: 20211109
  Receipt Date: 20211109
  Transmission Date: 20220303
  Serious: Yes (Hospitalization)
  Sender: FDA-Public Use
  Company Number: CN-SA-2021SA365134

PATIENT
  Age: 55 Year
  Sex: Female
  Weight: 67 kg

DRUGS (14)
  1. INSULIN GLARGINE [Suspect]
     Active Substance: INSULIN GLARGINE
     Indication: Type 2 diabetes mellitus
     Dosage: 3 U, QD (EVERY NIGHT)
  2. INSULIN GLARGINE [Suspect]
     Active Substance: INSULIN GLARGINE
     Dosage: 12 U
  3. METFORMIN HYDROCHLORIDE [Suspect]
     Active Substance: METFORMIN HYDROCHLORIDE
     Indication: Type 2 diabetes mellitus
     Dosage: 0.5 G, TID
     Route: 048
  4. GLIMEPIRIDE [Suspect]
     Active Substance: GLIMEPIRIDE
     Indication: Type 2 diabetes mellitus
     Dosage: 3 MG, QD
     Route: 048
  5. GLIMEPIRIDE [Suspect]
     Active Substance: GLIMEPIRIDE
     Dosage: 2 MG, QD (EVERY NIGHT)
  6. SITAGLIPTIN [Suspect]
     Active Substance: SITAGLIPTIN
     Indication: Type 2 diabetes mellitus
     Dosage: 100 MG, QD (TABLETS)
     Route: 048
  7. CALCIUM DOBESILATE [Concomitant]
     Active Substance: CALCIUM DOBESILATE
     Indication: Diabetic microangiopathy
     Dosage: 0.5 G, TID
     Route: 048
  8. SIMVASTATIN [Concomitant]
     Active Substance: SIMVASTATIN
     Indication: Hyperlipidaemia
     Dosage: 10 MG, QD (EVERY NIGHT)
     Route: 048
  9. VITAMIN B1 [Concomitant]
     Active Substance: THIAMINE HYDROCHLORIDE
     Dosage: 10 MG, TID
     Route: 048
  10. METHYLCOBALAMIN [Concomitant]
     Active Substance: METHYLCOBALAMIN
     Indication: Nervous system disorder
     Dosage: 500 UG, TID
     Route: 048
  11. OZAGREL SODIUM [Concomitant]
     Active Substance: OZAGREL SODIUM
     Indication: Anticoagulant therapy
  12. TANSHINONE IIA [Concomitant]
     Indication: Anticoagulant therapy
  13. PIOGLITAZONE [Concomitant]
     Active Substance: PIOGLITAZONE
     Dosage: 15 MG, QD
     Route: 048
  14. CLOZAPINE [Concomitant]
     Active Substance: CLOZAPINE
     Indication: Schizophrenia
     Dosage: 75 MG, QD (EVERY NIGHT)
     Route: 048

REACTIONS (13)
  - Insulin resistance [Recovered/Resolved]
  - Hyperinsulinaemia [Recovered/Resolved]
  - Blood glucose increased [Recovered/Resolved]
  - Blood glucose fluctuation [Recovered/Resolved]
  - Therapeutic product effect incomplete [Recovered/Resolved]
  - Blood glucose abnormal [Recovered/Resolved]
  - Palpitations [Recovered/Resolved]
  - Hunger [Recovered/Resolved]
  - Cold sweat [Recovered/Resolved]
  - Tremor [Recovered/Resolved]
  - Unevaluable event [Recovered/Resolved]
  - Injection site induration [Unknown]
  - Injection site reaction [Unknown]

NARRATIVE: CASE EVENT DATE: 20140801
